FAERS Safety Report 6572340-1 (Version None)
Quarter: 2010Q1

REPORT INFORMATION
  Report Type: 
  Country: None (occurrence: None)
  Receive Date: 20100201
  Receipt Date: 20100115
  Transmission Date: 20100710
  Serious: Yes (Hospitalization)
  Sender: FDA-Public Use
  Company Number: 2010-0204

PATIENT
  Age: 44 Year
  Sex: Female

DRUGS (1)
  1. SOMATULINE DEPOT [Suspect]
     Indication: ACROMEGALY
     Dosage: (120 MG), INTRAMUSCULAR
     Route: 030
     Dates: start: 20100114

REACTIONS (2)
  - DYSPNOEA [None]
  - HEADACHE [None]
